FAERS Safety Report 4711469-7 (Version None)
Quarter: 2005Q3

REPORT INFORMATION
  Report Type: 
  Country: None (occurrence: None)
  Receive Date: 20050711
  Receipt Date: 20050609
  Transmission Date: 20060218
  Serious: Yes (Hospitalization)
  Sender: FDA-Public Use
  Company Number: SU-2005-003740

PATIENT
  Sex: Female

DRUGS (1)
  1. BENICAR [Suspect]
     Indication: HYPERTENSION
     Dosage: PO
     Dates: start: 20050501, end: 20050101

REACTIONS (3)
  - DRUG HYPERSENSITIVITY [None]
  - EYE SWELLING [None]
  - SWELLING FACE [None]
